FAERS Safety Report 13017294 (Version 3)
Quarter: 2017Q1

REPORT INFORMATION
  Report Type: Spontaneous
  Country: TR (occurrence: TR)
  Receive Date: 20161212
  Receipt Date: 20170117
  Transmission Date: 20170428
  Serious: Yes (Death, Other)
  Sender: FDA-Public Use
  Company Number: TR-PFIZER INC-2016555694

PATIENT
  Sex: Male

DRUGS (1)
  1. LYRICA [Suspect]
     Active Substance: PREGABALIN
     Dosage: 5-6 TABLETS, UNK

REACTIONS (2)
  - Drug abuse [Unknown]
  - Hypertension [Fatal]

NARRATIVE: CASE EVENT DATE: 201611
